FAERS Safety Report 23964068 (Version 1)
Quarter: 2024Q2

REPORT INFORMATION
  Report Type: Spontaneous
  Country: US (occurrence: US)
  Receive Date: 20240611
  Receipt Date: 20240611
  Transmission Date: 20240715
  Serious: Yes (Other)
  Sender: FDA-Public Use
  Company Number: US-Blueprint Medicines Corporation-SP-US-2024-001159

PATIENT
  Age: 39 Year
  Sex: Male

DRUGS (3)
  1. AYVAKIT [Suspect]
     Active Substance: AVAPRITINIB
     Indication: Glioblastoma
     Route: 065
  2. AYVAKIT [Suspect]
     Active Substance: AVAPRITINIB
     Indication: Systemic mastocytosis
  3. UNSPECIFIED INGREDIENT [Concomitant]
     Active Substance: UNSPECIFIED INGREDIENT
     Indication: Necrosis
     Route: 065

REACTIONS (11)
  - Brain operation [Unknown]
  - Brain radiation necrosis [Unknown]
  - Brain oedema [Unknown]
  - Partial seizures [Unknown]
  - Fatigue [Unknown]
  - Emotional distress [Unknown]
  - Swelling face [Unknown]
  - Asthenia [Unknown]
  - Headache [Unknown]
  - Aphasia [Unknown]
  - Off label use [Unknown]
